FAERS Safety Report 5880019-4 (Version None)
Quarter: 2008Q3

REPORT INFORMATION
  Report Type: 
  Country: None (occurrence: None)
  Receive Date: 20080912
  Receipt Date: 20080902
  Transmission Date: 20090109
  Serious: Yes (Other)
  Sender: FDA-Public Use
  Company Number: US-PFIZER INC-2008059069

PATIENT
  Sex: Female

DRUGS (2)
  1. CHANTIX [Suspect]
     Dates: end: 20080801
  2. LIPITOR [Concomitant]

REACTIONS (2)
  - DEPRESSION [None]
  - OBSESSIVE-COMPULSIVE DISORDER [None]
